FAERS Safety Report 24647103 (Version 2)
Quarter: 2024Q4

REPORT INFORMATION
  Report Type: Report from Study
  Country: GB (occurrence: GB)
  Receive Date: 20241121
  Receipt Date: 20241206
  Transmission Date: 20250115
  Serious: Yes (Hospitalization, Other)
  Sender: AMGEN
  Company Number: GB-AMGEN-GBRSL2024189287

PATIENT
  Age: 34 Year
  Sex: Female

DRUGS (3)
  1. ECULIZUMAB [Suspect]
     Active Substance: ECULIZUMAB
     Indication: Paroxysmal nocturnal haemoglobinuria
     Dosage: 900 MILLIGRAM, Q2WK
     Route: 065
     Dates: start: 20240906
  2. ECULIZUMAB [Suspect]
     Active Substance: ECULIZUMAB
     Indication: Marchiafava-Bignami disease
     Dosage: 900 MILLIGRAM, Q2WK
     Route: 065
  3. CIPROFLOXACIN [Suspect]
     Active Substance: CIPROFLOXACIN
     Indication: Thrombosis
     Route: 065

REACTIONS (7)
  - Malaise [Unknown]
  - Thrombosis [Unknown]
  - Fatigue [Recovered/Resolved]
  - Dyspnoea [Recovered/Resolved]
  - Contusion [Unknown]
  - Pain in extremity [Unknown]
  - Phlebitis [Recovering/Resolving]
